FAERS Safety Report 5646362-9 (Version None)
Quarter: 2008Q1

REPORT INFORMATION
  Report Type: 
  Country: None (occurrence: None)
  Receive Date: 20080303
  Receipt Date: 20080219
  Transmission Date: 20080703
  Serious: No
  Sender: FDA-Public Use
  Company Number: US-ELI_LILLY_AND_COMPANY-US200802004865

PATIENT
  Age: 12 Year

DRUGS (1)
  1. OLANZAPINE [Suspect]
     Dosage: 5 MG, DAILY (1/D)

REACTIONS (2)
  - HYPERGLYCAEMIA [None]
  - NEUTROPENIA [None]
